FAERS Safety Report 7261650-0 (Version None)
Quarter: 2011Q1

REPORT INFORMATION
  Report Type: 
  Country: None (occurrence: None)
  Receive Date: 20110130
  Receipt Date: 20101102
  Transmission Date: 20110831
  Serious: No
  Sender: FDA-Public Use
  Company Number: US-ABBOTT-10P-163-0682997-00

PATIENT
  Sex: Female
  Weight: 89.892 kg

DRUGS (7)
  1. HUMIRA [Suspect]
     Indication: CROHN'S DISEASE
     Dates: start: 20100801
  2. HYDROCHLOROTHIAZIDE [Concomitant]
     Indication: BLOOD PRESSURE
  3. AMBIEN [Concomitant]
     Indication: INSOMNIA
  4. NEXIUM [Concomitant]
     Indication: GASTROOESOPHAGEAL REFLUX DISEASE
  5. LIPITOR [Concomitant]
     Indication: BLOOD CHOLESTEROL
  6. PERCOCET [Concomitant]
     Indication: BACK PAIN
  7. LISINOPRIL [Concomitant]
     Indication: BLOOD PRESSURE

REACTIONS (3)
  - VOMITING [None]
  - LOSS OF CONSCIOUSNESS [None]
  - NAUSEA [None]
